FAERS Safety Report 5066993-7 (Version None)
Quarter: 2006Q3

REPORT INFORMATION
  Report Type: 
  Country: None (occurrence: None)
  Receive Date: 20060726
  Receipt Date: 20060712
  Transmission Date: 20061208
  Serious: Yes (Hospitalization, Other)
  Sender: FDA-Public Use
  Company Number: 2005090578

PATIENT
  Age: 70 Year
  Sex: Male
  Weight: 100.6985 kg

DRUGS (1)
  1. BEXTRA [Suspect]
     Indication: ARTHRITIS
     Dosage: 20 MG (20 MG, 1 IN 1 D),
     Dates: start: 20020722, end: 20041101

REACTIONS (1)
  - CEREBROVASCULAR ACCIDENT [None]
